FAERS Safety Report 7432464-3 (Version None)
Quarter: 2011Q2

REPORT INFORMATION
  Report Type: 
  Country: None (occurrence: None)
  Receive Date: 20110414
  Receipt Date: 20110329
  Transmission Date: 20111010
  Serious: Yes (Hospitalization)
  Sender: FDA-Public Use
  Company Number: OMPQ-NO-1103S-0259

PATIENT
  Age: 76 Year
  Sex: Male

DRUGS (10)
  1. ATORVASTATIN CALCIUM (LIPITOR) (ATORVASTATIN CALCIUM) [Concomitant]
  2. NICORANDIL (NIKORANMART) (NICORANDIL) [Concomitant]
  3. TICLODIPINE HYDROCHLORIDE (PANALDINE) [Concomitant]
  4. DILTIAZEM HYDROCHLORIDE (HERBESSER )(DILTIAZEM HYDROCHLORIDE) [Concomitant]
  5. ACETYLSALICYLIC ACID (BAYASPIRIN) (ACETYLSALICYLIC ACID) [Concomitant]
  6. MEXILETINE HYDROCHLORIDE (MEXITIL) (MEXILETINE HYDROCHLORIDE) [Concomitant]
  7. VALSARTAN (DIOVAN) (VALSARTAN) [Concomitant]
  8. MECOBALAMIN (VANCOMIN) (MECOBALAMIN) [Concomitant]
  9. OMNIPAQUE 70 [Suspect]
     Indication: AORTIC ANEURYSM
     Dosage: 1 ML, SINGLE DOSE
     Dates: start: 20110128, end: 20110128
  10. BENIDINE HYDROCHLORIDE (CONIEL) (BENIDIPINE HYDROCHLORIDE) [Concomitant]

REACTIONS (5)
  - SENSATION OF PRESSURE [None]
  - HYPERSENSITIVITY [None]
  - ACUTE CORONARY SYNDROME [None]
  - ERYTHEMA [None]
  - PRURITUS [None]
